FAERS Safety Report 24411115 (Version 1)
Quarter: 2024Q4

REPORT INFORMATION
  Report Type: Spontaneous
  Country: US (occurrence: US)
  Receive Date: 20241008
  Receipt Date: 20241008
  Transmission Date: 20250114
  Serious: No
  Sender: OXFORD PHARMACEUTICALS
  Company Number: US-Oxford Pharmaceuticals, LLC-2162638

PATIENT
  Sex: Male

DRUGS (13)
  1. TIZANIDINE HYDROCHLORIDE [Suspect]
     Active Substance: TIZANIDINE HYDROCHLORIDE
     Indication: Arthritis
  2. NICOTINE [Concomitant]
     Active Substance: NICOTINE
  3. VYNDAMAX [Concomitant]
     Active Substance: TAFAMIDIS
  4. DAILY FIBER X [Concomitant]
  5. METOPROLOL TARTRATE [Concomitant]
     Active Substance: METOPROLOL TARTRATE
  6. XARELTO [Concomitant]
     Active Substance: RIVAROXABAN
  7. HYDRALAZINE HCL [Concomitant]
     Active Substance: HYDRALAZINE HYDROCHLORIDE
  8. VITAMIN D3 [Concomitant]
     Active Substance: CHOLECALCIFEROL
  9. NM-6603 [Concomitant]
     Active Substance: NM-6603
  10. VITAMIN C [Concomitant]
     Active Substance: ASCORBIC ACID
  11. STOOL SOFTENER (DOCUSATE SODIUM) [Concomitant]
     Active Substance: DOCUSATE SODIUM
  12. BUMETANIDE [Concomitant]
     Active Substance: BUMETANIDE
  13. PRAVASTATIN SODIUM [Concomitant]
     Active Substance: PRAVASTATIN SODIUM

REACTIONS (3)
  - Feeling abnormal [Unknown]
  - Derealisation [Unknown]
  - Off label use [Unknown]
